FAERS Safety Report 24142948 (Version 1)
Quarter: 2024Q3

REPORT INFORMATION
  Report Type: Spontaneous
  Country: US (occurrence: US)
  Receive Date: 20240726
  Receipt Date: 20240726
  Transmission Date: 20241017
  Serious: No
  Sender: MERCK
  Company Number: US-009507513-2406USA008997

PATIENT
  Sex: Female

DRUGS (15)
  1. WINREVAIR [Suspect]
     Active Substance: SOTATERCEPT-CSRK
     Indication: Pulmonary arterial hypertension
     Dosage: UNK
     Route: 058
  2. TREPROSTINIL SODIUM [Suspect]
     Active Substance: TREPROSTINIL SODIUM
     Indication: Pulmonary arterial hypertension
     Dosage: 0.014 MICROGRAM PER KILOGRAM, FREQUENCY: CONTINUOUS
     Route: 041
     Dates: start: 202404
  3. TREPROSTINIL SODIUM [Suspect]
     Active Substance: TREPROSTINIL SODIUM
     Dosage: 0.012 MICROGRAM PER KILOGRAM
     Route: 041
     Dates: start: 2024
  4. TREPROSTINIL SODIUM [Suspect]
     Active Substance: TREPROSTINIL SODIUM
     Dosage: 0.016 MICROGRAM PER KILOGRAM,
     Route: 041
  5. TREPROSTINIL SODIUM [Suspect]
     Active Substance: TREPROSTINIL SODIUM
     Dosage: 0.22 MICROGRAM PER KILOGRAM AT A PUMP RAT OF  1.6 ML/HR, FREQUENCY: CONTINUOUS
     Route: 041
     Dates: start: 2024
  6. TREPROSTINIL SODIUM [Suspect]
     Active Substance: TREPROSTINIL SODIUM
     Dosage: 0.039 MICROGRAM PER KILOGRAM, FREQUENCY: CONTINUOUS
     Route: 041
     Dates: start: 20240422
  7. TREPROSTINIL SODIUM [Suspect]
     Active Substance: TREPROSTINIL SODIUM
     Dosage: 0.049 MICROGRAM PER KILOGRAM, FREQUENCY: CONTINUOUS
     Route: 041
     Dates: start: 2024
  8. TREPROSTINIL SODIUM [Suspect]
     Active Substance: TREPROSTINIL SODIUM
     Dosage: UNK, FREQUENCY: CONTINUOUS
     Route: 041
     Dates: start: 20240422
  9. TYVASO DPI [Suspect]
     Active Substance: TREPROSTINIL
     Indication: Pulmonary arterial hypertension
     Dosage: UNK
  10. TYVASO DPI [Suspect]
     Active Substance: TREPROSTINIL
     Dosage: 64 MICROGRAM, QID
  11. TYVASO DPI [Suspect]
     Active Substance: TREPROSTINIL
     Dosage: 16 MICROGRAM
  12. TYVASO DPI [Suspect]
     Active Substance: TREPROSTINIL
     Dosage: 32 MICROGRAM
  13. TYVASO DPI [Suspect]
     Active Substance: TREPROSTINIL
     Dosage: 48 MICROGRAM
  14. BUMEX [Suspect]
     Active Substance: BUMETANIDE
     Indication: Product used for unknown indication
     Dosage: UNK
  15. SILDENAFIL CITRATE [Concomitant]
     Active Substance: SILDENAFIL CITRATE

REACTIONS (12)
  - Peripheral swelling [Unknown]
  - Swelling [Unknown]
  - Headache [Not Recovered/Not Resolved]
  - Restless legs syndrome [Not Recovered/Not Resolved]
  - Arthralgia [Not Recovered/Not Resolved]
  - Pain in extremity [Not Recovered/Not Resolved]
  - Vision blurred [Not Recovered/Not Resolved]
  - Crying [Unknown]
  - Pain in jaw [Unknown]
  - Dyskinesia [Unknown]
  - Weight increased [Unknown]
  - Dyspnoea exertional [Not Recovered/Not Resolved]

NARRATIVE: CASE EVENT DATE: 20240101
